FAERS Safety Report 4319613-0 (Version None)
Quarter: 2004Q1

REPORT INFORMATION
  Report Type: 
  Country: None (occurrence: None)
  Receive Date: 20040316
  Receipt Date: 20040302
  Transmission Date: 20041129
  Serious: Yes (Hospitalization, Disabling)
  Sender: FDA-Public Use
  Company Number: 2004-FF-00165FF (0)

PATIENT
  Age: 58 Year
  Sex: Male

DRUGS (4)
  1. MICARDIS [Suspect]
     Indication: HYPERTENSION
     Dosage: 80 MG (80 MG)
     Route: 048
  2. LERCAN (LERCANIDIPINE HYDROCHLORIDE) [Suspect]
     Dosage: 10 MG (MG)
     Route: 048
     Dates: start: 20031129
  3. MEDIATENSYL (URAPIDIL) [Suspect]
     Indication: HYPERTENSION
     Dosage: 30 MG (30 MG, 1 IN 1 D)
     Route: 048
  4. AVLOCARDYL (PROPANOLOL) [Suspect]
     Indication: HYPERTENSION
     Dosage: 40 MG (40 MG)
     Route: 048

REACTIONS (5)
  - CEREBRAL ISCHAEMIA [None]
  - HYPOAESTHESIA [None]
  - MALAISE [None]
  - MOBILITY DECREASED [None]
  - OVERDOSE [None]
